FAERS Safety Report 23813677 (Version 2)
Quarter: 2024Q2

REPORT INFORMATION
  Report Type: Spontaneous
  Country: ZA (occurrence: ZA)
  Receive Date: 20240503
  Receipt Date: 20240507
  Transmission Date: 20240715
  Serious: Yes (Other)
  Sender: FDA-Public Use
  Company Number: ZA-BAYER-2024A060161

PATIENT
  Age: 41 Year
  Sex: Female

DRUGS (1)
  1. MIRENA [Suspect]
     Active Substance: LEVONORGESTREL
     Indication: Contraception
     Dosage: 20?G/DAY
     Route: 015
     Dates: start: 2016

REACTIONS (7)
  - Pregnancy with contraceptive device [None]
  - Abortion spontaneous [None]
  - Embedded device [None]
  - Device breakage [None]
  - Complication of device removal [None]
  - Device dislocation [None]
  - Device difficult to use [None]

NARRATIVE: CASE EVENT DATE: 20240101
